FAERS Safety Report 9613093 (Version 2)
Quarter: 2014Q4

REPORT INFORMATION
  Report Type: Report from Study
  Country: US (occurrence: US)
  Receive Date: 20131010
  Receipt Date: 20141114
  Transmission Date: 20150529
  Serious: Yes (Hospitalization)
  Sender: FDA-Public Use
  Company Number: US-ROCHE-1285989

PATIENT
  Age: 82 Year
  Sex: Male
  Weight: 76.66 kg

DRUGS (20)
  1. MONTELUKAST SODIUM. [Concomitant]
     Active Substance: MONTELUKAST SODIUM
     Route: 048
  2. GLIPIZIDE. [Concomitant]
     Active Substance: GLIPIZIDE
     Route: 048
  3. HYDROCHLOROTHIAZIDE. [Concomitant]
     Active Substance: HYDROCHLOROTHIAZIDE
     Route: 065
  4. LOSARTAN [Concomitant]
     Active Substance: LOSARTAN
     Route: 048
  5. SIMVASTATIN. [Concomitant]
     Active Substance: SIMVASTATIN
     Dosage: 1 TAB AT BEDTIME
     Route: 065
  6. FLUTICASONE PROPIONATE. [Concomitant]
     Active Substance: FLUTICASONE PROPIONATE
     Dosage: 50MCG/ACT 2 SPRAYS IN EAH NOSTRIL ONCE DAILY
     Route: 065
  7. CETIRIZINE [Concomitant]
     Active Substance: CETIRIZINE HYDROCHLORIDE
     Route: 048
  8. HYDROXYCHLOROQUINE [Concomitant]
     Active Substance: HYDROXYCHLOROQUINE
     Route: 048
  9. IPRATROPIUM [Concomitant]
     Active Substance: IPRATROPIUM
     Dosage: 20 TO 100 MCG, 1 INHALATION 4 TIMES DAILY
     Route: 065
  10. CLONAZEPAM. [Suspect]
     Active Substance: CLONAZEPAM
     Indication: ANXIETY
     Route: 048
  11. FOLIC ACID. [Concomitant]
     Active Substance: FOLIC ACID
     Route: 065
  12. OMEPRAZOLE. [Concomitant]
     Active Substance: OMEPRAZOLE
     Route: 048
  13. SUCRALFATE. [Concomitant]
     Active Substance: SUCRALFATE
     Dosage: 1G/10ML
     Route: 048
  14. WARFARIN SODIUM. [Concomitant]
     Active Substance: WARFARIN SODIUM
     Route: 048
  15. BUDESONIDE. [Concomitant]
     Active Substance: BUDESONIDE
     Dosage: 0.5 MG/2ML
     Route: 065
  16. ISOSORBID (ISOSORBIDE MONONITRATE) [Concomitant]
     Route: 048
  17. FORMOTEROL FUMARATE [Concomitant]
     Active Substance: FORMOTEROL FUMARATE
     Dosage: 1 VIAL EVERY 12 HOURS
     Route: 065
  18. ACETAMINOPHEN. [Concomitant]
     Active Substance: ACETAMINOPHEN
     Indication: PAIN
     Route: 048
  19. ACETAMINOPHEN. [Concomitant]
     Active Substance: ACETAMINOPHEN
     Indication: PYREXIA
  20. GLIPIZIDE. [Concomitant]
     Active Substance: GLIPIZIDE
     Route: 048

REACTIONS (28)
  - Lung infiltration [Unknown]
  - Lower respiratory tract infection [Unknown]
  - Gastrooesophageal reflux disease [Unknown]
  - Sleep apnoea syndrome [Unknown]
  - Dyspnoea [Unknown]
  - Diabetes mellitus [Unknown]
  - Wheezing [Unknown]
  - Dysphagia [Unknown]
  - Lip pain [Unknown]
  - Dyspnoea [Unknown]
  - Apathy [Unknown]
  - Asthma [Unknown]
  - Acute respiratory failure [Unknown]
  - Rhinorrhoea [Unknown]
  - Blood immunoglobulin E increased [Unknown]
  - Blood glucose increased [Unknown]
  - Heart rate irregular [Unknown]
  - Swelling face [Unknown]
  - Cough [Unknown]
  - Somnolence [Unknown]
  - Barium swallow abnormal [Unknown]
  - Oedema peripheral [Unknown]
  - Rales [Unknown]
  - Chronic obstructive pulmonary disease [Unknown]
  - Nausea [Unknown]
  - Chest pain [Unknown]
  - Pneumonia [Unknown]
  - Weight decreased [Unknown]

NARRATIVE: CASE EVENT DATE: 201003
